FAERS Safety Report 18695260 (Version 1)
Quarter: 2021Q1

REPORT INFORMATION
  Report Type: Spontaneous
  Country: US (occurrence: US)
  Receive Date: 20210102
  Receipt Date: 20210102
  Transmission Date: 20210419
  Serious: No
  Sender: FDA-Public Use
  Company Number: None

PATIENT
  Age: 61 Year
  Sex: Female

DRUGS (1)
  1. CAPECITABINE TAB 500 MG [Suspect]
     Active Substance: CAPECITABINE
     Route: 048
     Dates: start: 202010

REACTIONS (5)
  - Hyperaesthesia teeth [None]
  - Eye irritation [None]
  - Gingival pain [None]
  - Drug ineffective [None]
  - Feeling cold [None]

NARRATIVE: CASE EVENT DATE: 20201202
